FAERS Safety Report 10244984 (Version 1)
Quarter: 2014Q2

REPORT INFORMATION
  Report Type: Spontaneous
  Country: US (occurrence: US)
  Receive Date: 20140618
  Receipt Date: 20140618
  Transmission Date: 20141212
  Serious: No
  Sender: FDA-Public Use
  Company Number: US-GALDERMA-US14001847

PATIENT
  Age: 45 Year
  Sex: Female

DRUGS (5)
  1. MIRVASO (BRIMONIDINE) TOPICAL GEL, 0.33% [Suspect]
     Indication: ROSACEA
     Dosage: 0.33%
     Route: 061
     Dates: start: 20140505
  2. SYNTHROID [Concomitant]
     Indication: AUTOIMMUNE THYROIDITIS
     Route: 048
     Dates: start: 1984
  3. TRIIODOTHYRONINE [Concomitant]
     Indication: AUTOIMMUNE THYROIDITIS
     Route: 048
  4. CLARITIN [Concomitant]
     Indication: SEASONAL ALLERGY
     Route: 048
  5. UNSPECIFIED SENSITIVE SKIN BODY WASH [Concomitant]
     Indication: THERAPEUTIC SKIN CARE TOPICAL
     Route: 061
     Dates: start: 1994

REACTIONS (4)
  - Rebound effect [Not Recovered/Not Resolved]
  - Drug ineffective [Not Recovered/Not Resolved]
  - Flushing [Not Recovered/Not Resolved]
  - Erythema [Not Recovered/Not Resolved]
